FAERS Safety Report 8041924-6 (Version None)
Quarter: 2012Q1

REPORT INFORMATION
  Report Type: 
  Country: None (occurrence: None)
  Receive Date: 20120112
  Receipt Date: 20111229
  Transmission Date: 20120608
  Serious: Yes (Life-Threatening)
  Sender: FDA-Public Use
  Company Number: PHEH2011US012966

PATIENT
  Sex: Female

DRUGS (1)
  1. AMTURNIDE [Suspect]

REACTIONS (4)
  - DYSPNOEA [None]
  - FEELING ABNORMAL [None]
  - WEIGHT INCREASED [None]
  - DRUG INEFFECTIVE [None]
